FAERS Safety Report 10045572 (Version 1)
Quarter: 2014Q1

REPORT INFORMATION
  Report Type: Spontaneous
  Country: US (occurrence: US)
  Receive Date: 20140328
  Receipt Date: 20140328
  Transmission Date: 20141002
  Serious: Yes (Death, Hospitalization, Other)
  Sender: FDA-Public Use
  Company Number: US-ASTRAZENECA-2014SE21204

PATIENT
  Sex: Female

DRUGS (13)
  1. SEROQUEL [Suspect]
     Route: 048
     Dates: end: 20110822
  2. DILANTIN [Suspect]
     Indication: CONVULSION
     Route: 065
     Dates: start: 20110712
  3. DILANTIN [Suspect]
     Indication: CONVULSION
     Dosage: DOSE INCREASED
     Route: 065
     Dates: start: 20110714
  4. DILANTIN [Suspect]
     Indication: CONVULSION
     Route: 042
     Dates: start: 20110718
  5. DILANTIN [Suspect]
     Indication: CONVULSION
     Route: 065
     Dates: end: 20110823
  6. GEODON [Suspect]
     Route: 065
  7. VALPROIC ACID [Suspect]
     Route: 065
     Dates: start: 20110731
  8. VALPROIC ACID [Suspect]
     Route: 065
     Dates: end: 20110823
  9. KEPPRA [Suspect]
     Indication: CONVULSION
     Route: 065
     Dates: start: 20110710
  10. KEPPRA [Suspect]
     Indication: CONVULSION
     Dosage: DOSE INCREASE
     Route: 065
     Dates: start: 20110714
  11. KEPPRA [Suspect]
     Indication: CONVULSION
     Route: 042
     Dates: start: 20110729
  12. OTHER MEDICATIONS [Concomitant]
  13. BENADRYL [Concomitant]

REACTIONS (11)
  - Stevens-Johnson syndrome [Fatal]
  - Mental status changes [Unknown]
  - Pyrexia [Unknown]
  - Headache [Unknown]
  - Convulsion [Unknown]
  - Renal disorder [Unknown]
  - Systemic lupus erythematosus [Unknown]
  - Tachycardia [Unknown]
  - Abdominal distension [Unknown]
  - Skin ulcer [Unknown]
  - Vomiting [Unknown]
